FAERS Safety Report 4359571-6 (Version None)
Quarter: 2004Q2

REPORT INFORMATION
  Report Type: 
  Country: None (occurrence: None)
  Receive Date: 20040517
  Receipt Date: 20040517
  Transmission Date: 20050107
  Serious: Yes (Hospitalization)
  Sender: FDA-Public Use
  Company Number: None

PATIENT
  Age: 73 Year
  Sex: Female

DRUGS (3)
  1. ASPIRIN [Suspect]
     Indication: CORONARY ARTERY DISEASE
     Dosage: 1 TAB DAILY ORAL
     Route: 048
     Dates: start: 19950101, end: 20040512
  2. WARFARIN SODIUM [Suspect]
     Indication: CORONARY ARTERY DISEASE
     Dosage: 1 TAB DAILY ORAL
     Route: 048
     Dates: start: 20040424, end: 20040511
  3. WARFARIN SODIUM [Suspect]
     Indication: EMBOLISM
     Dosage: 1 TAB DAILY ORAL
     Route: 048
     Dates: start: 20040424, end: 20040511

REACTIONS (2)
  - DIZZINESS [None]
  - GASTROINTESTINAL HAEMORRHAGE [None]
